FAERS Safety Report 7701024-9 (Version None)
Quarter: 2011Q3

REPORT INFORMATION
  Report Type: 
  Country: None (occurrence: None)
  Receive Date: 20110822
  Receipt Date: 20110817
  Transmission Date: 20111222
  Serious: Yes (Death, Hospitalization)
  Sender: FDA-Public Use
  Company Number: JP-BAYER-201014746BYL

PATIENT
  Age: 63 Year
  Sex: Male
  Weight: 66 kg

DRUGS (32)
  1. LACTITOL [Concomitant]
     Indication: HYPERAMMONAEMIA
     Dosage: 6 MG, TID
     Route: 048
     Dates: start: 20060215, end: 20110307
  2. BASEN [Concomitant]
     Indication: DIABETES MELLITUS
     Route: 048
     Dates: start: 20080913
  3. UREA [Concomitant]
     Indication: PALMAR-PLANTAR ERYTHRODYSAESTHESIA SYNDROME
     Dosage: UNK UNK, QS
     Route: 061
     Dates: start: 20100814
  4. OMEPRAZOLE [Concomitant]
     Indication: GASTRITIS PROPHYLAXIS
     Dosage: 20 MG, QD
     Dates: start: 20100907, end: 20100909
  5. SORAFENIB (RAF KINASE INHIBITOR) [Suspect]
     Indication: HEPATIC NEOPLASM MALIGNANT
     Dosage: 400 MG, BID
     Route: 048
     Dates: start: 20100814, end: 20100827
  6. URSODIOL [Concomitant]
     Indication: PROPHYLAXIS
     Dosage: 200 MG, TID
     Route: 065
     Dates: start: 20050527
  7. FLURBIPROFEN [Concomitant]
     Indication: PYREXIA
     Dosage: 50 MG, QD
     Dates: start: 20100908, end: 20100910
  8. CEFTRIAXONE [Concomitant]
     Indication: INFECTION
     Dosage: 1 G, QD
     Dates: start: 20100907, end: 20100907
  9. LACTULOSE [Concomitant]
     Indication: HYPERAMMONAEMIA
     Dosage: 10 ML, TID
     Dates: start: 20100925, end: 20110307
  10. CEFTRIAXONE [Concomitant]
     Dosage: 1 G, BID
     Dates: start: 20100908, end: 20100910
  11. FAMOTIDINE [Concomitant]
     Indication: GASTRITIS
     Dosage: 20 MG, BID
     Route: 065
     Dates: start: 20080913, end: 20110307
  12. NEUROBION [Concomitant]
     Indication: VITAMIN SUPPLEMENTATION
     Dosage: 1 DF, QD
     Dates: start: 20100908, end: 20100910
  13. TSUMRA SYAKUYAKUKANZOUTOU EKISU [Concomitant]
     Indication: MUSCLE SPASMS
     Dosage: 2.5 MG, TID
     Route: 048
     Dates: start: 20101127, end: 20101210
  14. SORAFENIB (RAF KINASE INHIBITOR) [Suspect]
     Dosage: 400 MG, QD
     Route: 048
     Dates: start: 20100906, end: 20110107
  15. LINIFANIB [Suspect]
     Indication: HEPATIC NEOPLASM MALIGNANT
  16. FAROPENEM [Concomitant]
     Indication: PYREXIA
     Dosage: 200 MG, TID
     Dates: start: 20100911
  17. TSUMRA SYAKUYAKUKANZOUTOU EKISU [Concomitant]
     Dosage: 2.5 MG, TID
     Route: 048
     Dates: start: 20101218
  18. AMINOLEBAN [Concomitant]
     Indication: HYPOALBUMINAEMIA
     Dosage: 500 ML, QD
     Route: 042
     Dates: start: 20100907, end: 20100910
  19. LACTULOSE [Concomitant]
     Indication: HEPATIC ENCEPHALOPATHY
     Dosage: 20 ML, TID
     Route: 048
     Dates: start: 20100908, end: 20100909
  20. FALKAMIN [Concomitant]
     Indication: HYPOALBUMINAEMIA
     Dosage: 4.15 G, BID
     Dates: start: 20101108
  21. GLUCOSE [Concomitant]
     Indication: PROPHYLAXIS
     Dosage: 20 ML, QD
     Dates: start: 20100907, end: 20100909
  22. SORAFENIB (RAF KINASE INHIBITOR) [Suspect]
     Dosage: 400 MG, QD
     Dates: start: 20110114
  23. BASEN [Concomitant]
  24. AMINOLEBAN [Concomitant]
     Indication: HYPERAMMONAEMIA
     Dosage: 50 G, QD
     Route: 042
     Dates: start: 20080407, end: 20100924
  25. UREA [Concomitant]
     Indication: PROPHYLAXIS
  26. VOGLIBOSE [Concomitant]
     Indication: DIABETES MELLITUS
     Dosage: 0.2 MG, BID
     Dates: start: 20080913
  27. DICLOFENAC SODIUM [Concomitant]
     Indication: PYREXIA
     Dosage: 25 MG, AS REQUIRED
     Dates: start: 20100925, end: 20110116
  28. FAMOTIDINE [Concomitant]
     Indication: PROPHYLAXIS
  29. GLUCOSE [Concomitant]
     Indication: HYPOGLYCAEMIA
  30. AMINOLEBAN [Concomitant]
     Indication: HEPATIC ENCEPHALOPATHY
     Dosage: 500 ML, QD
     Route: 042
     Dates: start: 20110109, end: 20110113
  31. CEFTRIAXONE [Concomitant]
     Dosage: 1 G, QD
     Dates: start: 20101101, end: 20101101
  32. FAMOTIDINE [Concomitant]
     Indication: GASTRITIS
     Dosage: 20 MG, QD
     Dates: start: 20100907, end: 20100909

REACTIONS (4)
  - INFECTIOUS PERITONITIS [None]
  - PYREXIA [None]
  - DEPRESSED LEVEL OF CONSCIOUSNESS [None]
  - HEPATIC ENCEPHALOPATHY [None]
